FAERS Safety Report 7086634-7 (Version None)
Quarter: 2010Q4

REPORT INFORMATION
  Report Type: 
  Country: None (occurrence: None)
  Receive Date: 20101105
  Receipt Date: 20101022
  Transmission Date: 20110411
  Serious: Yes (Other)
  Sender: FDA-Public Use
  Company Number: US-VALEANT-2010VX001818

PATIENT
  Age: 80 Year
  Sex: Female

DRUGS (2)
  1. TIMOPTIC [Suspect]
     Indication: GLAUCOMA
     Route: 047
     Dates: start: 19900101
  2. ACYCLOVIR SODIUM [Suspect]
     Indication: EYE INFECTION VIRAL
     Route: 048
     Dates: start: 20101001

REACTIONS (7)
  - CATARACT [None]
  - EYE INFECTION VIRAL [None]
  - EYE PAIN [None]
  - HERPES VIRUS INFECTION [None]
  - OCULAR HYPERAEMIA [None]
  - RETINAL TEAR [None]
  - VISION BLURRED [None]
